FAERS Safety Report 22984759 (Version 2)
Quarter: 2023Q4

REPORT INFORMATION
  Report Type: Spontaneous
  Country: RO (occurrence: RO)
  Receive Date: 20230926
  Receipt Date: 20231005
  Transmission Date: 20240109
  Serious: Yes (Other)
  Sender: FDA-Public Use
  Company Number: RO-SA-2019SA011086

PATIENT
  Age: 28 Year
  Sex: Female
  Weight: 59 kg

DRUGS (4)
  1. IMIGLUCERASE [Suspect]
     Active Substance: IMIGLUCERASE
     Dosage: 60 U/KG, QOW
     Route: 041
     Dates: start: 20020615
  2. IMIGLUCERASE [Suspect]
     Active Substance: IMIGLUCERASE
     Dosage: 3600 IU/KG
     Route: 042
  3. IMIGLUCERASE [Suspect]
     Active Substance: IMIGLUCERASE
     Dosage: 55-60 IU/KG
  4. VITAMIN D NOS [Concomitant]
     Active Substance: VITAMIN D NOS
     Dosage: UNK
     Dates: start: 199901

REACTIONS (4)
  - Osteonecrosis [Unknown]
  - Scoliosis [Unknown]
  - Skeletal injury [Unknown]
  - Exposure during pregnancy [Unknown]

NARRATIVE: CASE EVENT DATE: 20180101
